FAERS Safety Report 14296267 (Version 1)
Quarter: 2017Q4

REPORT INFORMATION
  Report Type: Spontaneous
  Country: DE (occurrence: DE)
  Receive Date: 20171218
  Receipt Date: 20171218
  Transmission Date: 20180321
  Serious: Yes (Hospitalization, Other)
  Sender: FDA-Public Use
  Company Number: PHHY2017DE184758

PATIENT
  Age: 25 Year
  Sex: Male
  Weight: 82 kg

DRUGS (17)
  1. OLANZAPINE. [Suspect]
     Active Substance: OLANZAPINE
     Indication: SCHIZOPHRENIA
     Dosage: 15 MG, UNK
     Route: 048
     Dates: start: 20170323, end: 20170325
  2. RISPERIDONE. [Suspect]
     Active Substance: RISPERIDONE
     Indication: SCHIZOPHRENIA
     Dosage: 1 MG, UNK
     Route: 048
     Dates: start: 20170404, end: 20170404
  3. RISPERIDONE. [Suspect]
     Active Substance: RISPERIDONE
     Dosage: 3 MG, UNK
     Route: 048
     Dates: start: 20170331, end: 20170331
  4. RISPERIDONE. [Suspect]
     Active Substance: RISPERIDONE
     Dosage: 3 MG, UNK
     Route: 048
     Dates: start: 20170403, end: 20170403
  5. TAVOR (LORAZEPAM) [Concomitant]
     Active Substance: LORAZEPAM
     Indication: PRODUCT USED FOR UNKNOWN INDICATION
     Dosage: 2 MG, UNK
     Route: 048
     Dates: start: 20170328, end: 20170330
  6. TAVOR (LORAZEPAM) [Concomitant]
     Active Substance: LORAZEPAM
     Dosage: 1 MG, UNK
     Route: 048
     Dates: start: 20170331, end: 20170403
  7. OLANZAPINE. [Suspect]
     Active Substance: OLANZAPINE
     Dosage: 20 MG, UNK
     Route: 048
     Dates: start: 20170405, end: 20170410
  8. OLANZAPINE. [Suspect]
     Active Substance: OLANZAPINE
     Dosage: 15 MG, UNK
     Route: 048
     Dates: start: 20170423, end: 20170423
  9. RISPERIDONE. [Suspect]
     Active Substance: RISPERIDONE
     Dosage: 2 MG, UNK
     Route: 048
     Dates: start: 20170329, end: 20170330
  10. TAVOR (LORAZEPAM) [Concomitant]
     Active Substance: LORAZEPAM
     Dosage: 3 MG, UNK
     Route: 048
     Dates: start: 20170325, end: 20170327
  11. TAVOR (LORAZEPAM) [Concomitant]
     Active Substance: LORAZEPAM
     Dosage: 0.5 MG, UNK
     Route: 048
     Dates: start: 20170404
  12. OLANZAPINE. [Suspect]
     Active Substance: OLANZAPINE
     Dosage: 5 MG, UNK
     Route: 048
     Dates: start: 20170427, end: 20170429
  13. OLANZAPINE. [Suspect]
     Active Substance: OLANZAPINE
     Dosage: 30 MG, UNK
     Route: 048
     Dates: start: 20170326, end: 20170404
  14. RISPERIDONE. [Suspect]
     Active Substance: RISPERIDONE
     Dosage: 4 MG, UNK
     Route: 048
     Dates: start: 20170401, end: 20170402
  15. OLANZAPINE. [Suspect]
     Active Substance: OLANZAPINE
     Dosage: 20 MG, UNK
     Route: 048
     Dates: start: 20170419, end: 20170422
  16. OLANZAPINE. [Suspect]
     Active Substance: OLANZAPINE
     Dosage: 10 MG, UNK
     Route: 048
     Dates: start: 20170424, end: 20170426
  17. OLANZAPINE. [Suspect]
     Active Substance: OLANZAPINE
     Dosage: 30 MG, UNK
     Route: 048
     Dates: start: 20170411, end: 20170418

REACTIONS (3)
  - Nausea [Unknown]
  - Abdominal pain [Unknown]
  - Transaminases increased [Recovered/Resolved]

NARRATIVE: CASE EVENT DATE: 20170403
